FAERS Safety Report 6712110-4 (Version None)
Quarter: 2010Q2

REPORT INFORMATION
  Report Type: 
  Country: None (occurrence: None)
  Receive Date: 20100505
  Receipt Date: 20100426
  Transmission Date: 20101027
  Serious: Yes (Other)
  Sender: FDA-Public Use
  Company Number: US-PFIZER INC-2010049293

PATIENT
  Sex: Female
  Weight: 58.05 kg

DRUGS (6)
  1. TOVIAZ [Suspect]
     Indication: HYPERTONIC BLADDER
     Dosage: 4 MG, 1X/DAY
     Route: 048
     Dates: start: 20100401
  2. OXYBUTYNIN [Concomitant]
     Dosage: UNK
  3. AMIODARONE [Concomitant]
     Indication: HYPERTENSION
     Dosage: 200 MG, 3X/WEEK
  4. AVAPRO [Concomitant]
     Indication: HYPERTENSION
     Dosage: UNK MG, 1X/DAY
     Route: 048
  5. PLAVIX [Concomitant]
     Indication: ANTIPLATELET THERAPY
     Dosage: 75 MG, 1X/DAY
     Route: 048
  6. SYNTHROID [Concomitant]
     Indication: THYROIDECTOMY
     Dosage: 0.1 MG, 1X/DAY
     Route: 048

REACTIONS (2)
  - DRUG INEFFECTIVE [None]
  - VISION BLURRED [None]
